FAERS Safety Report 8835329 (Version 2)
Quarter: 2012Q4

REPORT INFORMATION
  Report Type: 
  Country: US (occurrence: US)
  Receive Date: 20121011
  Receipt Date: 20121031
  Transmission Date: 20130627
  Serious: Yes (Other)
  Sender: FDA-Public Use
  Company Number: US-JNJFOC-20121005128

PATIENT
  Age: 76 Year
  Sex: Male
  Weight: 68.49 kg

DRUGS (11)
  1. XARELTO [Suspect]
     Indication: CEREBROVASCULAR ACCIDENT PROPHYLAXIS
     Route: 048
     Dates: start: 20120923
  2. XARELTO [Suspect]
     Indication: ATRIAL FIBRILLATION
     Route: 048
     Dates: start: 20120923
  3. NORVASC [Concomitant]
     Indication: BLOOD PRESSURE
  4. DIURETIC [Concomitant]
     Indication: BLOOD PRESSURE
  5. DIURETIC [Concomitant]
     Indication: FLUID RETENTION
  6. TOPROL XL [Concomitant]
     Indication: BLOOD PRESSURE
  7. ZOCOR [Concomitant]
     Indication: BLOOD CHOLESTEROL
  8. OMEPRAZOLE [Concomitant]
  9. MULTIVITAMIN TABLET [Concomitant]
  10. VITAMIN D [Concomitant]
  11. B12 [Concomitant]

REACTIONS (2)
  - Heart rate increased [Not Recovered/Not Resolved]
  - Blood pressure increased [Not Recovered/Not Resolved]
